FAERS Safety Report 5445658-3 (Version None)
Quarter: 2007Q3

REPORT INFORMATION
  Report Type: 
  Country: None (occurrence: None)
  Receive Date: 20070904
  Receipt Date: 20070820
  Transmission Date: 20080115
  Serious: Yes (Hospitalization, Other)
  Sender: FDA-Public Use
  Company Number: 163-C5013-03040056

PATIENT
  Age: 79 Year
  Sex: Female
  Weight: 52.8 kg

DRUGS (30)
  1. CC-5013 (LENALIDOMIDE)(CAPSULES) [Suspect]
     Indication: MULTIPLE MYELOMA
     Dosage: SEE IMAGE
     Route: 048
     Dates: start: 20030206, end: 20030224
  2. CC-5013 (LENALIDOMIDE)(CAPSULES) [Suspect]
     Indication: MULTIPLE MYELOMA
     Dosage: SEE IMAGE
     Route: 048
     Dates: start: 20030224, end: 20030304
  3. CC-5013 (LENALIDOMIDE)(CAPSULES) [Suspect]
     Indication: MULTIPLE MYELOMA
     Dosage: SEE IMAGE
     Route: 048
     Dates: start: 20030306, end: 20030322
  4. CC-5013 (LENALIDOMIDE)(CAPSULES) [Suspect]
     Indication: MULTIPLE MYELOMA
     Dosage: SEE IMAGE
     Route: 048
     Dates: start: 20030410
  5. SYNTHROID [Concomitant]
  6. DARVOCET-N 100 [Concomitant]
  7. COUMADIN [Concomitant]
  8. ZOMETA [Concomitant]
  9. EPOGEN [Concomitant]
  10. LEXAPRO [Concomitant]
  11. BENADRYL [Concomitant]
  12. MYSOLINE [Concomitant]
  13. ZYRTEC [Concomitant]
  14. XANAX [Concomitant]
  15. MAGOXIDE (MAGNESIUM OXIDE) [Concomitant]
  16. LEVAQUIN [Concomitant]
  17. ASPIRIN [Concomitant]
  18. LAXATIVES (LAXATIVES) [Concomitant]
  19. GRANULOCYTE COLONY STIMULATING FACTOR (GRANULOCYTE COLONY STIMULATING [Concomitant]
  20. VITAMIN E [Concomitant]
  21. CALCIUM (CALCIUM) [Concomitant]
  22. ADVIL [Concomitant]
  23. ACETAMINOPHEN [Concomitant]
  24. SODIUM CHLORIDE [Concomitant]
  25. MAG SULFATE (MAGNESIUM SULFATE) [Concomitant]
  26. ALLOPURINOL [Concomitant]
  27. VITAMIN B12 [Concomitant]
  28. ACYCLOVIR [Concomitant]
  29. DIFLUCAN [Concomitant]
  30. FOLATE (FOLATE SODIUM) [Concomitant]

REACTIONS (13)
  - ACTIVATED PARTIAL THROMBOPLASTIN TIME PROLONGED [None]
  - ANXIETY [None]
  - BACTERIA URINE IDENTIFIED [None]
  - CEREBELLAR INFARCTION [None]
  - CEREBROVASCULAR ACCIDENT [None]
  - DEAFNESS [None]
  - FEBRILE NEUTROPENIA [None]
  - HAEMATOCRIT DECREASED [None]
  - HAEMOGLOBIN DECREASED [None]
  - HYPERVENTILATION [None]
  - MYOCARDIAL ISCHAEMIA [None]
  - RESPIRATORY ALKALOSIS [None]
  - URINARY TRACT INFECTION [None]
